FAERS Safety Report 13586319 (Version 2)
Quarter: 2017Q3

REPORT INFORMATION
  Report Type: Spontaneous
  Country: JP (occurrence: JP)
  Receive Date: 20170526
  Receipt Date: 20170905
  Transmission Date: 20171127
  Serious: Yes (Hospitalization, Other)
  Sender: FDA-Public Use
  Company Number: JP-PFIZER INC-2017232785

PATIENT
  Age: 55 Year
  Sex: Female
  Weight: 62 kg

DRUGS (3)
  1. CELECOX [Suspect]
     Active Substance: CELECOXIB
     Indication: RIB FRACTURE
     Dosage: UNK
     Route: 048
     Dates: start: 20170307, end: 20170319
  2. FAMOTIDINE. [Suspect]
     Active Substance: FAMOTIDINE
     Indication: RIB FRACTURE
     Dosage: UNK
     Route: 048
     Dates: start: 20170307, end: 20170319
  3. CELECOX [Suspect]
     Active Substance: CELECOXIB
     Indication: PAIN

REACTIONS (9)
  - Hepatic enzyme increased [Recovering/Resolving]
  - Vomiting [Unknown]
  - Jaundice [Unknown]
  - Liver disorder [Recovering/Resolving]
  - Pruritus [Unknown]
  - Nausea [Unknown]
  - Viral infection [Unknown]
  - Abdominal pain upper [Unknown]
  - Gastroenteritis [Unknown]

NARRATIVE: CASE EVENT DATE: 20170317
